FAERS Safety Report 5208421-4 (Version None)
Quarter: 2006Q4

REPORT INFORMATION
  Report Type: 
  Country: None (occurrence: None)
  Receive Date: 20061026
  Receipt Date: 20060810
  Transmission Date: 20070319
  Serious: No
  Sender: FDA-Public Use
  Company Number: 2006098733

PATIENT
  Age: 60 Year
  Sex: Female

DRUGS (5)
  1. LYRICA [Suspect]
     Indication: NEURALGIA
     Dosage: 150 MG (75 MG,2 IN 1 D)
     Dates: start: 20060701
  2. LIPITOR [Concomitant]
  3. PROMETRIUM [Concomitant]
  4. ESTRATEST [Concomitant]
  5. ACTONEL [Concomitant]

REACTIONS (3)
  - ROTATOR CUFF SYNDROME [None]
  - SEDATION [None]
  - WEIGHT INCREASED [None]
